FAERS Safety Report 8372995-5 (Version None)
Quarter: 2012Q2

REPORT INFORMATION
  Report Type: 
  Country: None (occurrence: None)
  Receive Date: 20120521
  Receipt Date: 20111207
  Transmission Date: 20120825
  Serious: No
  Sender: FDA-Public Use
  Company Number: US-ASTRAZENECA-2011SE78720

PATIENT
  Age: 57 Year
  Sex: Female

DRUGS (2)
  1. PRILOSEC OTC [Suspect]
     Route: 048
     Dates: start: 20111111, end: 20111201
  2. SYNTHROID [Concomitant]
     Dosage: UNKNOWN

REACTIONS (3)
  - DYSPEPSIA [None]
  - DIARRHOEA [None]
  - INCORRECT DRUG ADMINISTRATION DURATION [None]
